FAERS Safety Report 6248536-5 (Version None)
Quarter: 2009Q2

REPORT INFORMATION
  Report Type: 
  Country: None (occurrence: None)
  Receive Date: 20090629
  Receipt Date: 20090624
  Transmission Date: 20091009
  Serious: Yes (Hospitalization)
  Sender: FDA-Public Use
  Company Number: FR-BRISTOL-MYERS SQUIBB COMPANY-14678759

PATIENT
  Age: 80 Year
  Sex: Female

DRUGS (9)
  1. ECAZIDE TABS [Suspect]
     Dosage: 1 DOSAGEFORM = 1 SCORED TABS
  2. NICARDIPINE HCL [Suspect]
     Dosage: LOXEN 50 MG S.R.  1 DOSAGEFORM = ONE SUSTAINED-RELEASE CAPSULE
  3. GLUCOPHAGE [Concomitant]
     Indication: TYPE 2 DIABETES MELLITUS
     Dosage: GLUCOPHAGE FILM COATED TABS
     Route: 048
     Dates: start: 20080901
  4. AMARYL [Concomitant]
     Dosage: STRENGTH 2 MG 1 DOSAGE FORM = 3 TABLETS
  5. HEMIGOXINE NATIVELLE [Concomitant]
     Dosage: 1DF-1 UNITS
  6. LIPANTHYL [Concomitant]
     Dosage: 1DF-1 UNIT
  7. PAROXETINE HCL [Concomitant]
     Dosage: PAROXETINE BASE
  8. LEVOTHYROX [Concomitant]
     Dosage: STRENGTH 75MG 1 DOSAGEFORM = 1 SCORED TAB
  9. CERIS [Concomitant]
     Dosage: STRENGTH 20MG 1 DOSAGEFORM = 1 TAB

REACTIONS (9)
  - AMNESIA [None]
  - BLOOD POTASSIUM DECREASED [None]
  - BLOOD PRESSURE SYSTOLIC INCREASED [None]
  - EXCORIATION [None]
  - FALL [None]
  - GLYCOSYLATED HAEMOGLOBIN INCREASED [None]
  - HYPERGLYCAEMIA [None]
  - MALAISE [None]
  - MUSCULOSKELETAL CHEST PAIN [None]
